FAERS Safety Report 10467895 (Version 1)
Quarter: 2014Q3

REPORT INFORMATION
  Report Type: Spontaneous
  Country: PL (occurrence: PL)
  Receive Date: 20140922
  Receipt Date: 20140922
  Transmission Date: 20150326
  Serious: Yes (Hospitalization)
  Sender: FDA-Public Use
  Company Number: PHHY2014PL118238

PATIENT
  Age: 23 Year
  Sex: Male

DRUGS (1)
  1. FLONIDAN [Suspect]
     Active Substance: LORATADINE
     Indication: RASH
     Dosage: 2 DF, DAILY
     Route: 048
     Dates: start: 20140218, end: 20140223

REACTIONS (4)
  - Hepatomegaly [Recovering/Resolving]
  - Aspartate aminotransferase increased [Recovering/Resolving]
  - Alanine aminotransferase increased [Recovering/Resolving]
  - Rash macular [Recovering/Resolving]

NARRATIVE: CASE EVENT DATE: 20140218
